FAERS Safety Report 9168034 (Version 1)
Quarter: 2013Q1

REPORT INFORMATION
  Report Type: Spontaneous
  Country: GB (occurrence: None)
  Receive Date: 20130307
  Receipt Date: 20130307
  Transmission Date: 20140127
  Serious: Yes (Hospitalization, Other)
  Sender: FDA-Public Use
  Company Number: GER/UKI/13/0028364

PATIENT
  Age: 86 Year
  Sex: Female

DRUGS (6)
  1. DONEPEZIL (DONEPEZIL) [Suspect]
     Indication: DEMENTIA
     Route: 048
     Dates: end: 20130214
  2. ALENDRONATE SODIUM (ALENDRONATE SODIUM) (ALENDRONATE SODIUM) [Concomitant]
  3. ENALAPRIL [Concomitant]
  4. GLICLAZIDE (GLICLAZIDE) [Concomitant]
  5. LANTUS (INSULIN GLARGINE) [Concomitant]
  6. PARACETAMOL (PARACETAMOL) [Concomitant]

REACTIONS (2)
  - Circulatory collapse [None]
  - Electrocardiogram QT prolonged [None]
